FAERS Safety Report 9822800 (Version 1)
Quarter: 2014Q1

REPORT INFORMATION
  Report Type: Spontaneous
  Country: US (occurrence: US)
  Receive Date: 20140116
  Receipt Date: 20140116
  Transmission Date: 20141002
  Serious: Yes (Hospitalization)
  Sender: FDA-Public Use
  Company Number: US-PFIZER INC-2014010450

PATIENT
  Age: 37 Year
  Sex: Female

DRUGS (1)
  1. VERAPAMIL HCL [Suspect]
     Indication: MIGRAINE
     Dosage: 5 DF, UNK

REACTIONS (8)
  - Overdose [Unknown]
  - Hypocalcaemia [Unknown]
  - Dizziness [Unknown]
  - Nausea [Unknown]
  - Chest pain [Unknown]
  - Hypotension [Recovering/Resolving]
  - Bradycardia [Unknown]
  - Metabolic acidosis [Unknown]
